FAERS Safety Report 8048265-1 (Version None)
Quarter: 2012Q1

REPORT INFORMATION
  Report Type: 
  Country: None (occurrence: None)
  Receive Date: 20120117
  Receipt Date: 20120113
  Transmission Date: 20120608
  Serious: Yes (Hospitalization, Other)
  Sender: FDA-Public Use
  Company Number: TR-PFIZER INC-2012012031

PATIENT
  Age: 29 Year
  Sex: Female
  Weight: 75 kg

DRUGS (5)
  1. ZEDPREX [Concomitant]
     Indication: MIGRAINE
     Dosage: 25 MG, UNK
     Route: 048
     Dates: start: 20120103
  2. VARENICLINE TARTRATE [Suspect]
     Indication: SMOKING CESSATION THERAPY
     Dosage: 2 MG, 1X/DAY
     Route: 048
     Dates: start: 20111003, end: 20120103
  3. DIDERAL [Concomitant]
     Indication: MIGRAINE
     Dosage: 40 MG, UNK
     Route: 048
     Dates: start: 20120103
  4. XEFO [Concomitant]
     Indication: MIGRAINE
     Dosage: 8 MG, UNK
     Route: 048
     Dates: start: 20120103
  5. FROVATRIPTAN [Concomitant]
     Indication: MIGRAINE
     Dosage: 2.5 MG, UNK
     Route: 048
     Dates: start: 20120103

REACTIONS (4)
  - DIPLOPIA [None]
  - VISUAL IMPAIRMENT [None]
  - HERPES ZOSTER OTICUS [None]
  - HEADACHE [None]
